FAERS Safety Report 9819203 (Version 1)
Quarter: 2013Q4

REPORT INFORMATION
  Report Type: Spontaneous
  Country: US (occurrence: None)
  Receive Date: 20131223
  Receipt Date: 20131223
  Transmission Date: 20140711
  Serious: No
  Sender: FDA-Public Use
  Company Number: 217462

PATIENT
  Age: 40 Year
  Sex: Female

DRUGS (1)
  1. PICATO [Suspect]
     Indication: ACTINIC KERATOSIS
     Dosage: (DAILY), TOPICAL ON FOREHEAD AND PART OF NOSE
     Route: 061
     Dates: start: 20120426, end: 20120427

REACTIONS (2)
  - Application site vesicles [None]
  - Influenza like illness [None]
